FAERS Safety Report 18131190 (Version 1)
Quarter: 2020Q3

REPORT INFORMATION
  Report Type: Spontaneous
  Country: US (occurrence: US)
  Receive Date: 20200810
  Receipt Date: 20200810
  Transmission Date: 20201103
  Serious: Yes (Hospitalization, Other)
  Sender: FDA-Public Use
  Company Number: US-INDIVIOR EUROPE LIMITED-INDV-125464-2020

PATIENT
  Age: 63 Year
  Sex: Male

DRUGS (1)
  1. SUBOXONE [Suspect]
     Active Substance: BUPRENORPHINE HYDROCHLORIDE\NALOXONE HYDROCHLORIDE
     Indication: DRUG DEPENDENCE
     Dosage: 8?2 MILLIGRAM, Q12H, 60 STRIPS FOR 30 DAYS
     Route: 060
     Dates: start: 20200423, end: 20200427

REACTIONS (11)
  - Drug hypersensitivity [Unknown]
  - Drug withdrawal syndrome [Recovered/Resolved]
  - Inappropriate schedule of product administration [Recovered/Resolved]
  - Diarrhoea [Unknown]
  - Swelling face [Unknown]
  - Seizure [Unknown]
  - Memory impairment [Unknown]
  - Rash [Unknown]
  - Angina pectoris [Unknown]
  - Gastric dilatation [Unknown]
  - Vomiting [Unknown]

NARRATIVE: CASE EVENT DATE: 202004
